FAERS Safety Report 5387625-4 (Version None)
Quarter: 2007Q3

REPORT INFORMATION
  Report Type: 
  Country: None (occurrence: None)
  Receive Date: 20070712
  Receipt Date: 20070712
  Transmission Date: 20080115
  Serious: Yes (Hospitalization)
  Sender: FDA-Public Use
  Company Number: None

PATIENT
  Age: 56 Year
  Sex: Male

DRUGS (1)
  1. CLOPIDOGREL [Suspect]
     Indication: ILL-DEFINED DISORDER
     Dosage: 75MG EVERY DAY PO
     Route: 048
     Dates: start: 20070208, end: 20070709

REACTIONS (1)
  - HAEMORRHAGE [None]
